FAERS Safety Report 7799642-5 (Version None)
Quarter: 2011Q4

REPORT INFORMATION
  Report Type: 
  Country: None (occurrence: None)
  Receive Date: 20111006
  Receipt Date: 20101029
  Transmission Date: 20120403
  Serious: Yes (Other)
  Sender: FDA-Public Use
  Company Number: US-BRISTOL-MYERS SQUIBB COMPANY-13704374

PATIENT
  Age: 61 Year
  Sex: Male

DRUGS (4)
  1. MONOPRIL [Concomitant]
     Dates: start: 20061201
  2. ALBUTEROL [Concomitant]
     Dates: start: 20050101
  3. METFORMIN HCL [Suspect]
     Indication: TYPE 2 DIABETES MELLITUS
     Route: 048
     Dates: start: 20070105, end: 20070305
  4. SAXAGLIPTIN [Suspect]
     Indication: TYPE 2 DIABETES MELLITUS
     Dosage: 1 TAB 5JAN07-5MAR07, 3 TABS 11JAN07-5MAR07
     Route: 048
     Dates: start: 20070105, end: 20070305

REACTIONS (1)
  - LYMPHOPENIA [None]
